FAERS Safety Report 23662938 (Version 1)
Quarter: 2024Q1

REPORT INFORMATION
  Report Type: Report from Study
  Country: AR (occurrence: AR)
  Receive Date: 20240322
  Receipt Date: 20240322
  Transmission Date: 20240409
  Serious: Yes (Death)
  Sender: FDA-Public Use
  Company Number: AR-ABBVIE-5689295

PATIENT
  Age: 68 Year
  Sex: Male

DRUGS (1)
  1. RINVOQ [Suspect]
     Active Substance: UPADACITINIB
     Indication: Rheumatoid arthritis
     Dosage: FORM STRENGTH: 15 MG
     Route: 048
     Dates: start: 20211010, end: 202311

REACTIONS (2)
  - Septic shock [Fatal]
  - Skin ulcer [Fatal]

NARRATIVE: CASE EVENT DATE: 20231101
